FAERS Safety Report 7500592-X (Version None)
Quarter: 2011Q2

REPORT INFORMATION
  Report Type: 
  Country: None (occurrence: None)
  Receive Date: 20110524
  Receipt Date: 20110510
  Transmission Date: 20111010
  Serious: Yes (Other)
  Sender: FDA-Public Use
  Company Number: CA-JNJFOC-20100706115

PATIENT
  Sex: Male
  Weight: 114 kg

DRUGS (16)
  1. RAMIPRIL [Concomitant]
  2. OMEGA 3-6-9 [Concomitant]
     Indication: RHEUMATOID ARTHRITIS
  3. PLAVIX [Concomitant]
  4. METOPROLOL [Concomitant]
  5. FENOFIBRATE [Concomitant]
  6. OXAZEPAM [Concomitant]
  7. MORPHINE [Concomitant]
  8. REMICADE [Suspect]
     Route: 042
     Dates: start: 20090201
  9. NITRO-DUR [Concomitant]
  10. NEXIUM [Concomitant]
  11. NORVASC [Concomitant]
  12. REMICADE [Suspect]
     Indication: RHEUMATOID ARTHRITIS
     Route: 042
     Dates: start: 20100716
  13. DOCUSATE SODIUM [Concomitant]
  14. ZANTAC [Concomitant]
  15. CRESTOR [Concomitant]
  16. ASPIRIN [Concomitant]

REACTIONS (2)
  - PAIN IN EXTREMITY [None]
  - BONE PAIN [None]
